FAERS Safety Report 4478283-1 (Version None)
Quarter: 2004Q4

REPORT INFORMATION
  Report Type: 
  Country: None (occurrence: None)
  Receive Date: 20041019
  Receipt Date: 20040514
  Transmission Date: 20050328
  Serious: Yes (Other)
  Sender: FDA-Public Use
  Company Number: FR-ROCHE-368077

PATIENT
  Age: 23 Year
  Sex: Male
  Weight: 65 kg

DRUGS (3)
  1. ROACCUTANE [Suspect]
     Indication: ACNE
     Dosage: THIRD CYCLE.
     Route: 048
     Dates: end: 20030615
  2. ROACCUTANE [Suspect]
     Dosage: FIRST CYCLE.
     Route: 048
     Dates: start: 19970315
  3. ROACCUTANE [Suspect]
     Dosage: SECOND CYCLE.
     Route: 048

REACTIONS (2)
  - DRY MOUTH [None]
  - SUBMAXILLARY GLAND ENLARGEMENT [None]
